FAERS Safety Report 21303411 (Version 1)
Quarter: 2022Q3

REPORT INFORMATION
  Report Type: Spontaneous
  Country: US (occurrence: US)
  Receive Date: 20220907
  Receipt Date: 20220907
  Transmission Date: 20221027
  Serious: Yes (Other)
  Sender: FDA-Public Use
  Company Number: US-PFIZER INC-PV202200058187

PATIENT
  Age: 77 Year
  Sex: Female
  Weight: 89.796 kg

DRUGS (1)
  1. PAXLOVID [Suspect]
     Active Substance: NIRMATRELVIR\RITONAVIR
     Indication: COVID-19 treatment
     Dosage: 2X/DAY
     Route: 048
     Dates: start: 20220829, end: 20220830

REACTIONS (3)
  - Rash [Recovering/Resolving]
  - Swollen tongue [Recovering/Resolving]
  - Paraesthesia oral [Recovering/Resolving]
